FAERS Safety Report 7559546-X (Version None)
Quarter: 2011Q2

REPORT INFORMATION
  Report Type: 
  Country: None (occurrence: None)
  Receive Date: 20110621
  Receipt Date: 20110620
  Transmission Date: 20111010
  Serious: Yes (Hospitalization)
  Sender: FDA-Public Use
  Company Number: IT-SANOFI-AVENTIS-2011SA038666

PATIENT
  Age: 50 Year
  Sex: Female

DRUGS (6)
  1. LASIX [Suspect]
     Indication: INTENTIONAL SELF-INJURY
     Dosage: DOSE:3 UNIT(S)
     Route: 048
     Dates: start: 20110616, end: 20110616
  2. GABAPENTIN [Suspect]
     Route: 048
     Dates: end: 20110615
  3. LORAZEPAM [Suspect]
     Dosage: DOSE:3 UNIT(S)
     Route: 048
     Dates: start: 20110616, end: 20110616
  4. GABAPENTIN [Suspect]
     Route: 048
     Dates: start: 20110616, end: 20110616
  5. VENLAFAXINE [Concomitant]
     Route: 048
  6. LORAZEPAM [Suspect]
     Route: 048
     Dates: end: 20110615

REACTIONS (4)
  - INTENTIONAL SELF-INJURY [None]
  - BRADYKINESIA [None]
  - PSYCHOMOTOR RETARDATION [None]
  - TACHYCARDIA [None]
